FAERS Safety Report 8595731-6 (Version None)
Quarter: 2012Q3

REPORT INFORMATION
  Report Type: 
  Country: None (occurrence: None)
  Receive Date: 20120815
  Receipt Date: 20120809
  Transmission Date: 20120928
  Serious: Yes (Other)
  Sender: FDA-Public Use
  Company Number: PHHY2012GB069102

PATIENT
  Age: 55 Year
  Sex: Female

DRUGS (6)
  1. ACETAMINOPHEN [Concomitant]
     Dosage: 1 G, PRN
     Route: 048
  2. LEVOTHYROXINE SODIUM [Concomitant]
     Dosage: 125 UG, QD
  3. PREGABALIN [Concomitant]
     Dosage: 100 MG, BID
     Route: 048
  4. DIAZEPAM [Suspect]
     Dosage: 2 MG, QID
     Route: 048
  5. TRIMETHOPRIM [Suspect]
     Dosage: 200 MG, BID
     Route: 048
     Dates: start: 20120328, end: 20120407
  6. ZOPICLONE [Concomitant]
     Indication: INSOMNIA
     Dosage: 7.5 MG, QD
     Route: 048

REACTIONS (2)
  - WHITE BLOOD CELL COUNT DECREASED [None]
  - NEUTROPENIA [None]
